FAERS Safety Report 26145742 (Version 1)
Quarter: 2025Q4

REPORT INFORMATION
  Report Type: Spontaneous
  Country: US (occurrence: None)
  Receive Date: 20251210
  Receipt Date: 20251210
  Transmission Date: 20260118
  Serious: Yes (Disabling)
  Sender: FDA-CTU
  Company Number: None

PATIENT
  Age: 13 Year
  Sex: Male
  Weight: 54 kg

DRUGS (1)
  1. ZYRTEC [Suspect]
     Active Substance: CETIRIZINE HYDROCHLORIDE
     Indication: Seasonal allergy
     Dosage: OTHER QUANTITY : 1 TABLET(S);?FREQUENCY : DAILY;
     Route: 048
     Dates: end: 20250901

REACTIONS (12)
  - Affective disorder [None]
  - Behaviour disorder [None]
  - Depression [None]
  - Crying [None]
  - Self-destructive behaviour [None]
  - Suicidal ideation [None]
  - Cognitive disorder [None]
  - Social avoidant behaviour [None]
  - Anhedonia [None]
  - Decreased activity [None]
  - Withdrawal syndrome [None]
  - Product communication issue [None]

NARRATIVE: CASE EVENT DATE: 20240301
